FAERS Safety Report 13202106 (Version 1)
Quarter: 2017Q1

REPORT INFORMATION
  Report Type: Spontaneous
  Country: TW (occurrence: TW)
  Receive Date: 20170209
  Receipt Date: 20170209
  Transmission Date: 20170428
  Serious: Yes (Other)
  Sender: FDA-Public Use
  Company Number: TW-ASTELLAS-2017US003828

PATIENT
  Age: 58 Year
  Sex: Male

DRUGS (2)
  1. CLOBETASOL 0.05% [Concomitant]
     Active Substance: CLOBETASOL
     Indication: DERMATITIS
     Dosage: UNK UNK, UNKNOWN FREQ.
     Route: 061
  2. TACROLIMUS. [Suspect]
     Active Substance: TACROLIMUS
     Indication: MORPHOEA
     Dosage: UNK UNK, UNKNOWN FREQ.
     Route: 061

REACTIONS (3)
  - Recall phenomenon [Unknown]
  - Off label use [Unknown]
  - Dermatitis [Unknown]
